FAERS Safety Report 24659776 (Version 1)
Quarter: 2024Q4

REPORT INFORMATION
  Report Type: Spontaneous
  Country: BR (occurrence: BR)
  Receive Date: 20241125
  Receipt Date: 20241125
  Transmission Date: 20250115
  Serious: Yes (Other)
  Sender: Phathom Pharmaceuticals
  Company Number: BR-PHATHOM PHARMACEUTICALS INC.-2024PHT01368

PATIENT
  Sex: Female
  Weight: 78 kg

DRUGS (5)
  1. VONOPRAZAN FUMARATE [Suspect]
     Active Substance: VONOPRAZAN FUMARATE
     Indication: Product used for unknown indication
     Dosage: UNK
     Route: 065
  2. DEXILANT [Suspect]
     Active Substance: DEXLANSOPRAZOLE
     Indication: Oesophagitis
     Dosage: UNK UNK, QD
     Route: 048
  3. DEXILANT [Suspect]
     Active Substance: DEXLANSOPRAZOLE
     Indication: Gastrooesophageal reflux disease
  4. DEXILANT [Suspect]
     Active Substance: DEXLANSOPRAZOLE
     Indication: Hiatus hernia
  5. DOMPERIDONE [Concomitant]
     Active Substance: DOMPERIDONE

REACTIONS (7)
  - Cor pulmonale [Unknown]
  - Dyspnoea [Unknown]
  - Incorrect product administration duration [Unknown]
  - Drug ineffective [Unknown]
  - Vitamin B12 decreased [Unknown]
  - Immune system disorder [Unknown]
  - Herpes zoster [Unknown]
